FAERS Safety Report 9434455 (Version 4)
Quarter: 2013Q4

REPORT INFORMATION
  Report Type: Spontaneous
  Country: FR (occurrence: FR)
  Receive Date: 20130801
  Receipt Date: 20131001
  Transmission Date: 20140711
  Serious: Yes (Life-Threatening)
  Sender: FDA-Public Use
  Company Number: FR-ROCHE-1254878

PATIENT
  Age: 74 Year
  Sex: Male

DRUGS (19)
  1. BACTRIM FORTE [Suspect]
     Indication: ANTIBIOTIC PROPHYLAXIS
     Route: 048
     Dates: start: 20130426, end: 20130610
  2. MABTHERA [Suspect]
     Indication: CHRONIC LYMPHOCYTIC LEUKAEMIA
     Route: 065
     Dates: start: 20130425, end: 20130524
  3. ZELITREX [Suspect]
     Indication: ANTIBIOTIC PROPHYLAXIS
     Dosage: 500 MG
     Route: 048
     Dates: start: 20130426
  4. LEDERFOLINE [Suspect]
     Indication: PRODUCT USED FOR UNKNOWN INDICATION
     Route: 048
     Dates: start: 20130426, end: 20130621
  5. ENDOXAN [Suspect]
     Indication: CHRONIC LYMPHOCYTIC LEUKAEMIA
     Route: 048
     Dates: start: 20130425, end: 20130526
  6. ZYLORIC [Suspect]
     Indication: HYPERURICAEMIA
     Dosage: 300 MG
     Route: 048
     Dates: start: 20130426, end: 20130524
  7. POLARAMINE [Suspect]
     Indication: PRODUCT USED FOR UNKNOWN INDICATION
     Route: 042
     Dates: start: 20130524, end: 20130524
  8. PERFALGAN [Suspect]
     Indication: PRODUCT USED FOR UNKNOWN INDICATION
     Route: 065
     Dates: start: 20130524, end: 20130524
  9. SOLU-MEDROL [Suspect]
     Indication: PRODUCT USED FOR UNKNOWN INDICATION
     Route: 065
     Dates: start: 20130524, end: 20130524
  10. FLUDARABINE [Suspect]
     Indication: CHRONIC LYMPHOCYTIC LEUKAEMIA
     Route: 048
     Dates: start: 20130426, end: 20130526
  11. SILODYX [Concomitant]
     Dosage: 1 DF IN THE MORNING
     Route: 048
  12. ZANIDIP (FRANCE) [Concomitant]
     Dosage: 1 DF IN THE MORNING
     Route: 048
  13. KARDEGIC [Concomitant]
     Dosage: 1 DF IN THE MORNING
     Route: 048
  14. CRESTOR [Concomitant]
     Dosage: 1 DF IN THE EVENING
     Route: 048
  15. DUOTRAV [Concomitant]
     Dosage: IN THE RIGHT EYE, IN THE EVENING
     Route: 047
  16. TRUSOPT [Concomitant]
     Dosage: IN THE RIGHT EYE
     Route: 047
  17. VALACICLOVIR [Concomitant]
     Route: 065
  18. SOLUPRED (FRANCE) [Concomitant]
     Dosage: 3 TABLETS IN THE MORNING FOR 2 DAYS
     Route: 065
  19. DERMOVAL (FRANCE) [Concomitant]

REACTIONS (1)
  - Drug reaction with eosinophilia and systemic symptoms [Recovering/Resolving]
